FAERS Safety Report 4843652-4 (Version None)
Quarter: 2005Q4

REPORT INFORMATION
  Report Type: 
  Country: None (occurrence: None)
  Receive Date: 20051129
  Receipt Date: 20051110
  Transmission Date: 20060501
  Serious: No
  Sender: FDA-Public Use
  Company Number: AU200511001114

PATIENT
  Age: 19 Year
  Sex: Male

DRUGS (1)
  1. ZYPREXA [Suspect]
     Indication: MANIA
     Dosage: 10 MG, DAILY (1/D), ORAL
     Route: 048
     Dates: start: 20050101

REACTIONS (1)
  - NEUTROPENIA [None]
